FAERS Safety Report 23307696 (Version 1)
Quarter: 2023Q4

REPORT INFORMATION
  Report Type: Report from Study
  Country: ZA (occurrence: ZA)
  Receive Date: 20231218
  Receipt Date: 20231218
  Transmission Date: 20240109
  Serious: Yes (Other)
  Sender: FDA-Public Use
  Company Number: ZA-JNJFOC-20231225645

PATIENT
  Age: 44 Year
  Sex: Female

DRUGS (1)
  1. STELARA [Suspect]
     Active Substance: USTEKINUMAB
     Indication: Product used for unknown indication
     Route: 058
     Dates: end: 202308

REACTIONS (2)
  - Psychotic disorder [Unknown]
  - Abscess [Unknown]

NARRATIVE: CASE EVENT DATE: 20230801
